FAERS Safety Report 7124592-7 (Version None)
Quarter: 2010Q4

REPORT INFORMATION
  Report Type: 
  Country: None (occurrence: None)
  Receive Date: 20101123
  Receipt Date: 20101123
  Transmission Date: 20110411
  Serious: Yes (Life-Threatening, Hospitalization)
  Sender: FDA-Public Use
  Company Number: None

PATIENT
  Sex: Male
  Weight: 16.3295 kg

DRUGS (1)
  1. CEFDINIR [Suspect]
     Indication: EAR INFECTION
     Dosage: 1 TEASPOON ONCE DAILY PO
     Route: 048
     Dates: start: 20101116, end: 20101118

REACTIONS (6)
  - DRUG INEFFECTIVE [None]
  - FALL [None]
  - MASTOIDITIS [None]
  - PRODUCT ODOUR ABNORMAL [None]
  - SINUSITIS [None]
  - UNRESPONSIVE TO STIMULI [None]
